FAERS Safety Report 14720765 (Version 1)
Quarter: 2018Q2

REPORT INFORMATION
  Report Type: Spontaneous
  Country: FR (occurrence: FR)
  Receive Date: 20180405
  Receipt Date: 20180405
  Transmission Date: 20180711
  Serious: Yes (Hospitalization, Other)
  Sender: FDA-Public Use
  Company Number: FR-ASTELLAS-2018US015943

PATIENT
  Age: 50 Year
  Sex: Female

DRUGS (4)
  1. ANTILYMPHOCYTE SERUM [Suspect]
     Active Substance: THYMOCYTE IMMUNE GLOBULIN NOS
     Indication: RENAL TRANSPLANT
     Dosage: 75 MG, ONCE DAILY (FIRST 5 DAYS POST TRANSPLANTATION)
     Route: 065
  2. METHYLPREDNISOLONE. [Suspect]
     Active Substance: METHYLPREDNISOLONE
     Indication: RENAL TRANSPLANT
     Route: 065
  3. MYCOPHENOLIC ACID. [Suspect]
     Active Substance: MYCOPHENOLIC ACID
     Indication: RENAL TRANSPLANT
     Dosage: UNK UNK, UNKNOWN FREQ.
     Route: 065
  4. TACROLIMUS. [Suspect]
     Active Substance: TACROLIMUS
     Indication: RENAL TRANSPLANT
     Dosage: UNK UNK, UNKNOWN FREQ. (TROUGH BLOOD LEVEL BETWEEN 8 AND 10 NG/ML)
     Route: 065

REACTIONS (10)
  - Device occlusion [Unknown]
  - Hydronephrosis [Unknown]
  - Bacterial pyelonephritis [Unknown]
  - Renal impairment [Unknown]
  - Urinoma [Unknown]
  - Ureteral necrosis [Unknown]
  - Escherichia infection [Unknown]
  - Typhoid fever [Unknown]
  - Bacterial diarrhoea [Unknown]
  - Systemic candida [Recovered/Resolved]
